FAERS Safety Report 8085719-6 (Version None)
Quarter: 2012Q1

REPORT INFORMATION
  Report Type: 
  Country: None (occurrence: None)
  Receive Date: 20120128
  Receipt Date: 20110405
  Transmission Date: 20120608
  Serious: No
  Sender: FDA-Public Use
  Company Number: US-ABBOTT-11P-163-0716683-00

PATIENT
  Age: 53 Year
  Sex: Female

DRUGS (11)
  1. KLONOPIN [Concomitant]
     Indication: ANXIETY
  2. TRAZODONE HCL [Concomitant]
     Indication: ABDOMINAL PAIN
     Dosage: UP TO 2 TABS DAILY
  3. PENTASA [Concomitant]
     Indication: CROHN'S DISEASE
  4. HYDROCHLOROTH [Concomitant]
     Indication: FLUID RETENTION
  5. XANAX [Concomitant]
     Indication: STRESS
  6. DIOVAN [Concomitant]
     Indication: PRODUCT USED FOR UNKNOWN INDICATION
  7. XANAX [Concomitant]
     Indication: ANXIETY
     Dosage: UP TO 3 TABS DAILY AS NEEDED
  8. HUMIRA [Suspect]
     Indication: CROHN'S DISEASE
     Dates: start: 20110313
  9. XANAX [Concomitant]
     Indication: PANIC ATTACK
  10. ENTOCORT EC [Concomitant]
     Indication: PRODUCT USED FOR UNKNOWN INDICATION
     Dates: end: 20110406
  11. AMLODIPINE [Concomitant]
     Indication: CARDIOVASCULAR EVENT PROPHYLAXIS

REACTIONS (3)
  - PRODUCTIVE COUGH [None]
  - VAGINAL HAEMORRHAGE [None]
  - SPUTUM DISCOLOURED [None]
